FAERS Safety Report 7763704 (Version 12)
Quarter: 2013Q3

REPORT INFORMATION
  Report Type: Spontaneous
  Country: US (occurrence: US)
  Receive Date: 20110118
  Receipt Date: 20130711
  Transmission Date: 20140515
  Serious: Yes (Hospitalization, Other)
  Sender: FDA-Public Use
  Company Number: US-ROCHE-751886

PATIENT
  Age: 17 Year
  Sex: Male
  Weight: 86.2 kg

DRUGS (4)
  1. ACCUTANE [Suspect]
     Indication: ACNE
     Route: 065
  2. ACCUTANE [Suspect]
     Route: 065
     Dates: start: 19971222, end: 19980222
  3. ACCUTANE [Suspect]
     Route: 065
     Dates: start: 199909, end: 200003
  4. ACCUTANE [Suspect]
     Route: 065
     Dates: start: 20010820, end: 20011229

REACTIONS (23)
  - Colitis ulcerative [Unknown]
  - Colon cancer [Unknown]
  - Large intestine polyp [Unknown]
  - Irritable bowel syndrome [Recovering/Resolving]
  - Injury [Unknown]
  - Inflammatory bowel disease [Unknown]
  - Intestinal obstruction [Unknown]
  - Ileus paralytic [Unknown]
  - Anal fissure [Unknown]
  - Anal fistula [Unknown]
  - Depressed mood [Unknown]
  - Calculus ureteric [Unknown]
  - Nephrolithiasis [Unknown]
  - Conjunctivitis [Unknown]
  - Acne [Unknown]
  - Dry skin [Unknown]
  - Cheilitis [Unknown]
  - Eczema [Unknown]
  - Lip dry [Unknown]
  - Fatigue [Unknown]
  - Epistaxis [Unknown]
  - Pain [Unknown]
  - Arthralgia [Unknown]
